FAERS Safety Report 13013012 (Version 1)
Quarter: 2016Q4

REPORT INFORMATION
  Report Type: Spontaneous
  Country: US (occurrence: US)
  Receive Date: 20161208
  Receipt Date: 20161208
  Transmission Date: 20170207
  Serious: No
  Sender: FDA-Public Use
  Company Number: None

PATIENT
  Age: 28 Year
  Sex: Female
  Weight: 71.1 kg

DRUGS (7)
  1. PROPARACAINE [Suspect]
     Active Substance: PROPARACAINE
     Indication: OPHTHALMOLOGICAL EXAMINATION
     Dates: start: 20161031, end: 20161031
  2. LEVOTHYROXINE. [Concomitant]
     Active Substance: LEVOTHYROXINE
  3. CALCIUM MAGNESIUM ZINC [Concomitant]
     Active Substance: CALCIUM\MAGNESIUM\ZINC
  4. WOMEN^S ONCE A DAY PROBIOTICS [Concomitant]
  5. PROPARACAINE [Suspect]
     Active Substance: PROPARACAINE
     Indication: MYDRIASIS
     Dates: start: 20161031, end: 20161031
  6. RAW PRENATAL VITAMIN [Concomitant]
  7. COD LIVER OIL [Concomitant]
     Active Substance: COD LIVER OIL

REACTIONS (4)
  - Diarrhoea [None]
  - Nausea [None]
  - Cold sweat [None]
  - Retching [None]

NARRATIVE: CASE EVENT DATE: 20161031
